FAERS Safety Report 12343753 (Version 1)
Quarter: 2016Q2

REPORT INFORMATION
  Report Type: Spontaneous
  Country: US (occurrence: US)
  Receive Date: 20160507
  Receipt Date: 20160507
  Transmission Date: 20160815
  Serious: No
  Sender: FDA-Public Use
  Company Number: US-ACCORD-034185

PATIENT
  Sex: Female

DRUGS (2)
  1. QUETIAPINE. [Suspect]
     Active Substance: QUETIAPINE
     Indication: SLEEP DISORDER
     Dosage: HALF OF A 25 MG TABLET FOR 4 DAYS, LATER RECEIVED HALF OF A 50 MG TABLET, WHOLE 50 MG TABLET.
     Route: 048
  2. EFFEXOR [Concomitant]
     Active Substance: VENLAFAXINE HYDROCHLORIDE
     Dosage: HAS BEEN TAKING FOR 8-9 YEARS

REACTIONS (2)
  - Drug ineffective [Recovered/Resolved]
  - Off label use [Unknown]
